FAERS Safety Report 25760595 (Version 1)
Quarter: 2025Q3

REPORT INFORMATION
  Report Type: Spontaneous
  Country: US (occurrence: US)
  Receive Date: 20250904
  Receipt Date: 20250904
  Transmission Date: 20251021
  Serious: Yes (Life-Threatening, Hospitalization, Other)
  Sender: PFIZER
  Company Number: US-PFIZER INC-PV202500105995

PATIENT
  Age: 45 Year
  Sex: Female

DRUGS (19)
  1. LORAZEPAM [Suspect]
     Active Substance: LORAZEPAM
     Indication: Anxiety
  2. LORAZEPAM [Suspect]
     Active Substance: LORAZEPAM
     Indication: Helplessness
  3. IMIPRAMINE [Suspect]
     Active Substance: IMIPRAMINE
     Indication: Generalised anxiety disorder
  4. IMIPRAMINE [Suspect]
     Active Substance: IMIPRAMINE
     Indication: Major depression
  5. IMIPRAMINE [Suspect]
     Active Substance: IMIPRAMINE
     Indication: Drug dependence
  6. GABAPENTIN [Suspect]
     Active Substance: GABAPENTIN
     Indication: Generalised anxiety disorder
  7. GABAPENTIN [Suspect]
     Active Substance: GABAPENTIN
     Indication: Major depression
  8. MIRTAZAPINE [Suspect]
     Active Substance: MIRTAZAPINE
     Indication: Generalised anxiety disorder
  9. MIRTAZAPINE [Suspect]
     Active Substance: MIRTAZAPINE
     Indication: Major depression
  10. CLONAZEPAM [Suspect]
     Active Substance: CLONAZEPAM
     Indication: Generalised anxiety disorder
  11. CLONAZEPAM [Suspect]
     Active Substance: CLONAZEPAM
     Indication: Major depression
  12. DIPHENHYDRAMINE [Suspect]
     Active Substance: DIPHENHYDRAMINE
     Indication: Generalised anxiety disorder
  13. DIPHENHYDRAMINE [Suspect]
     Active Substance: DIPHENHYDRAMINE
     Indication: Major depression
  14. TRAZODONE [Suspect]
     Active Substance: TRAZODONE HYDROCHLORIDE
     Indication: Generalised anxiety disorder
  15. TRAZODONE [Suspect]
     Active Substance: TRAZODONE HYDROCHLORIDE
     Indication: Major depression
  16. PROPRANOLOL [Suspect]
     Active Substance: PROPRANOLOL HYDROCHLORIDE
     Indication: Generalised anxiety disorder
  17. PROPRANOLOL [Suspect]
     Active Substance: PROPRANOLOL HYDROCHLORIDE
     Indication: Major depression
  18. LITHIUM [Suspect]
     Active Substance: LITHIUM
     Indication: Generalised anxiety disorder
  19. LITHIUM [Suspect]
     Active Substance: LITHIUM
     Indication: Major depression

REACTIONS (2)
  - Suicidal ideation [Unknown]
  - Patient dissatisfaction with treatment [Unknown]
